FAERS Safety Report 4923986-5 (Version None)
Quarter: 2006Q1

REPORT INFORMATION
  Report Type: 
  Country: None (occurrence: None)
  Receive Date: 20060227
  Receipt Date: 20060202
  Transmission Date: 20060701
  Serious: Yes (Hospitalization)
  Sender: FDA-Public Use
  Company Number: US-MERCK-0602USA01769

PATIENT
  Age: 70 Year
  Sex: Male
  Weight: 102 kg

DRUGS (6)
  1. VIOXX [Suspect]
     Indication: ARTHRITIS
     Route: 048
     Dates: start: 20010307
  2. VIOXX [Suspect]
     Route: 048
     Dates: start: 20000217, end: 20000726
  3. VIOXX [Suspect]
     Route: 048
     Dates: start: 20010423, end: 20010625
  4. VIOXX [Suspect]
     Indication: JOINT SPRAIN
     Route: 048
     Dates: start: 20010307
  5. VIOXX [Suspect]
     Route: 048
     Dates: start: 20000217, end: 20000726
  6. VIOXX [Suspect]
     Route: 048
     Dates: start: 20010423, end: 20010625

REACTIONS (21)
  - ARRHYTHMIA SUPRAVENTRICULAR [None]
  - BASAL CELL CARCINOMA [None]
  - BLOOD CHOLESTEROL INCREASED [None]
  - BLOOD TRIGLYCERIDES INCREASED [None]
  - CHEST DISCOMFORT [None]
  - CORONARY ARTERY DISEASE [None]
  - DYSPNOEA [None]
  - GASTRIC ULCER HAEMORRHAGE [None]
  - HYPERTENSION [None]
  - LABILE BLOOD PRESSURE [None]
  - MULTIPLE FRACTURES [None]
  - MYOCARDIAL ISCHAEMIA [None]
  - NECK INJURY [None]
  - OEDEMA PERIPHERAL [None]
  - PARANASAL SINUS HYPERSECRETION [None]
  - ROAD TRAFFIC ACCIDENT [None]
  - ROSACEA [None]
  - SINUSITIS [None]
  - TONSILLECTOMY [None]
  - WEIGHT DECREASED [None]
  - WHITE BLOOD CELL COUNT INCREASED [None]
